FAERS Safety Report 23601062 (Version 3)
Quarter: 2024Q4

REPORT INFORMATION
  Report Type: Spontaneous
  Country: FR (occurrence: FR)
  Receive Date: 20240306
  Receipt Date: 20241007
  Transmission Date: 20250115
  Serious: No
  Sender: ALEXION PHARMACEUTICALS
  Company Number: 2024A051255

PATIENT

DRUGS (11)
  1. SAPHNELO [Suspect]
     Active Substance: ANIFROLUMAB-FNIA
     Indication: Malignant atrophic papulosis
     Dosage: 2 INJECTIONS 3 WEEKS APART, FREQUENCY: UNK
  2. SAPHNELO [Suspect]
     Active Substance: ANIFROLUMAB-FNIA
     Dosage: 2 INJECTIONS 3 WEEKS APART, FREQUENCY: UNK
  3. SAPHNELO [Suspect]
     Active Substance: ANIFROLUMAB-FNIA
     Dosage: 2 INJECTIONS 3 WEEKS APART, FREQUENCY: UNK
  4. SAPHNELO [Suspect]
     Active Substance: ANIFROLUMAB-FNIA
     Dosage: 2 INJECTIONS 3 WEEKS APART, FREQUENCY: UNK
  5. SAPHNELO [Suspect]
     Active Substance: ANIFROLUMAB-FNIA
     Dosage: IN A SINGLE INJECTION, FREQUENCY: Q4WK
  6. SAPHNELO [Suspect]
     Active Substance: ANIFROLUMAB-FNIA
     Dosage: IN A SINGLE INJECTION, FREQUENCY: Q4WK
  7. SAPHNELO [Suspect]
     Active Substance: ANIFROLUMAB-FNIA
     Dosage: IN A SINGLE INJECTION, FREQUENCY: Q4WK
  8. SAPHNELO [Suspect]
     Active Substance: ANIFROLUMAB-FNIA
     Dosage: IN A SINGLE INJECTION, FREQUENCY: Q4WK
  9. UNSPECIFIED INGREDIENT [Concomitant]
     Active Substance: UNSPECIFIED INGREDIENT
  10. CORTICOSTEROID NOS [Concomitant]
     Active Substance: CORTICOSTEROID NOS
  11. ECULIZUMAB [Concomitant]
     Active Substance: ECULIZUMAB

REACTIONS (4)
  - Feeding disorder [Unknown]
  - Off label use [Unknown]
  - Therapeutic response unexpected [Unknown]
  - Inappropriate schedule of product administration [Unknown]
